FAERS Safety Report 7583118-4 (Version None)
Quarter: 2011Q2

REPORT INFORMATION
  Report Type: 
  Country: None (occurrence: None)
  Receive Date: 20110630
  Receipt Date: 20101115
  Transmission Date: 20111010
  Serious: No
  Sender: FDA-Public Use
  Company Number: US-ASTRAZENECA-2010SE54716

PATIENT
  Sex: Male

DRUGS (1)
  1. ZOLADEX [Suspect]
     Indication: PROSTATE CANCER
     Dosage: 10.8 MG  Q3MO
     Route: 058
     Dates: start: 20101111

REACTIONS (2)
  - INCORRECT DOSE ADMINISTERED [None]
  - IMPLANT SITE EXTRAVASATION [None]
